FAERS Safety Report 6694684-5 (Version None)
Quarter: 2010Q2

REPORT INFORMATION
  Report Type: 
  Country: None (occurrence: None)
  Receive Date: 20100423
  Receipt Date: 20100413
  Transmission Date: 20101027
  Serious: Yes (Hospitalization)
  Sender: FDA-Public Use
  Company Number: US-ELI_LILLY_AND_COMPANY-US201004003462

PATIENT
  Sex: Male
  Weight: 145.13 kg

DRUGS (13)
  1. BYETTA [Suspect]
     Indication: TYPE 2 DIABETES MELLITUS
     Dosage: 5 UG, 2/D
     Route: 058
     Dates: end: 20090101
  2. BYETTA [Suspect]
     Dosage: 5 UG, 2/D
     Route: 058
     Dates: start: 20090101
  3. BYETTA [Suspect]
     Dosage: 5 UG, 2/D
     Route: 058
     Dates: end: 20100201
  4. BYETTA [Suspect]
     Dosage: 5 UG, 2/D
     Route: 058
     Dates: start: 20100201
  5. ZOCOR [Concomitant]
     Indication: BLOOD CHOLESTEROL
     Dosage: 20 MG, DAILY (1/D)
  6. LOTREL [Concomitant]
     Indication: BLOOD PRESSURE
     Dosage: UNK, DAILY (1/D)
  7. TRIAMTERENE [Concomitant]
     Indication: BLOOD PRESSURE
     Dosage: 112.5 MG, DAILY (1/D)
  8. NIASPAN [Concomitant]
     Indication: BLOOD TRIGLYCERIDES
     Dosage: 1500 MG, DAILY (1/D)
  9. RITALIN [Concomitant]
     Indication: ATTENTION DEFICIT/HYPERACTIVITY DISORDER
     Dosage: 20 MG, 2/D
  10. ASPIRIN [Concomitant]
     Dosage: 325 MG, DAILY (1/D)
  11. GLUCOSAMINE [Concomitant]
     Dosage: UNK, DAILY (1/D)
  12. VITAMIN D [Concomitant]
     Dosage: UNK, DAILY (1/D)
  13. ACIDOPHILUS [Concomitant]
     Dosage: UNK, DAILY (1/D)

REACTIONS (6)
  - BLOOD POTASSIUM DECREASED [None]
  - DRUG DOSE OMISSION [None]
  - HAEMATOCHEZIA [None]
  - MALAISE [None]
  - NAUSEA [None]
  - RECTAL CANCER STAGE III [None]
